FAERS Safety Report 19661165 (Version 1)
Quarter: 2021Q3

REPORT INFORMATION
  Report Type: Spontaneous
  Country: NL (occurrence: IT)
  Receive Date: 20210805
  Receipt Date: 20210805
  Transmission Date: 20211014
  Serious: Yes (Other)
  Sender: FDA-Public Use
  Company Number: IT-FRESENIUS KABI-FK202107865

PATIENT
  Age: 16 Year
  Sex: Female

DRUGS (5)
  1. ETHINYLESTRADIOL/LEVONORGESTREL [Concomitant]
     Active Substance: ETHINYL ESTRADIOL\LEVONORGESTREL
     Indication: PRODUCT USED FOR UNKNOWN INDICATION
     Dosage: 0.1 MG+0.02 MG
     Route: 065
  2. SODIUM CHLORIDE (MANUFACTURER UNKNOWN) [Suspect]
     Active Substance: SODIUM CHLORIDE
     Indication: PRODUCT USED FOR UNKNOWN INDICATION
     Dosage: 1 IN TOTAL
     Route: 065
  3. KETOPROFEN LYSINE [Interacting]
     Active Substance: KETOPROFEN LYSINE
     Indication: ARTHRALGIA
     Dosage: 160 MG / 2 ML
     Route: 065
     Dates: start: 202103
  4. PANTOPRAZOLE SODIUM SESQUIHYDRATE [Interacting]
     Active Substance: PANTOPRAZOLE SODIUM
     Indication: PRODUCT USED FOR UNKNOWN INDICATION
     Dosage: 40 MG IN TOTAL
     Route: 065
  5. KETOPROFEN LYSINE [Interacting]
     Active Substance: KETOPROFEN LYSINE
     Indication: BACK PAIN

REACTIONS (5)
  - Off label use [Not Recovered/Not Resolved]
  - Diplegia [Not Recovered/Not Resolved]
  - Clonic convulsion [Recovered/Resolved]
  - Loss of control of legs [Not Recovered/Not Resolved]
  - Contraindicated product administered [Not Recovered/Not Resolved]

NARRATIVE: CASE EVENT DATE: 202103
